FAERS Safety Report 16583364 (Version 3)
Quarter: 2019Q3

REPORT INFORMATION
  Report Type: Spontaneous
  Country: US (occurrence: US)
  Receive Date: 20190717
  Receipt Date: 20190816
  Transmission Date: 20191004
  Serious: Yes (Other)
  Sender: FDA-Public Use
  Company Number: US-PFIZER INC-2019299327

PATIENT
  Age: 88 Year
  Sex: Female
  Weight: 99.79 kg

DRUGS (30)
  1. REVATIO [Suspect]
     Active Substance: SILDENAFIL CITRATE
     Indication: PULMONARY HYPERTENSION
     Dosage: 20 MG, 3X/DAY (TAKE ONE TABLET/CAPSULE BY MOUTH MORNING, MIDDAY AND EVENING FOR A TOTAL OF THREE)
  2. POTASSIUM CHLORIDE. [Concomitant]
     Active Substance: POTASSIUM CHLORIDE
     Dosage: UNK
  3. ASPIRIN 81 [Concomitant]
     Active Substance: ASPIRIN
     Dosage: 81 MG, 1X/DAY
     Route: 048
  4. MAGNESIUM OXIDE. [Concomitant]
     Active Substance: MAGNESIUM OXIDE
     Dosage: 400 MG, AS NEEDED (TAKE ONE BY MOUTH EVERY DAY PRN)
  5. OMEGA-3 FATTY ACIDS [Concomitant]
     Active Substance: OMEGA-3 FATTY ACIDS
     Dosage: UNK (TAKE ONE BY MOUTH EVERY DAY)
  6. SIMVASTATIN. [Concomitant]
     Active Substance: SIMVASTATIN
     Dosage: 20 MG, UNK
     Dates: start: 20190121
  7. RESTORIL [Concomitant]
     Active Substance: TEMAZEPAM
     Dosage: 30 MG, DAILY (TAKE TWO CAPSULE BY MOUTH EVERY NIGHT AT BEDTIME AS NEEDED FOR SLEEP)
     Route: 048
  8. NEXIUM 24HR [Concomitant]
     Active Substance: ESOMEPRAZOLE MAGNESIUM
     Dosage: 20 MG, 1X/DAY
     Route: 048
  9. GLIPIZIDE. [Concomitant]
     Active Substance: GLIPIZIDE
     Dosage: 10 MG, 1X/DAY
     Route: 048
  10. HYDROCHLOROTHIAZIDE. [Concomitant]
     Active Substance: HYDROCHLOROTHIAZIDE
     Dosage: 25 MG, AS NEEDED (TAKE ONE TABLET BY MOUTH ONCE WEEKLY ON WEDNESDAY AS NEEDED)
     Route: 048
  11. LUMIGAN [Concomitant]
     Active Substance: BIMATOPROST
     Dosage: 1 GTT, 1X/DAY
  12. GABAPENTIN. [Concomitant]
     Active Substance: GABAPENTIN
     Indication: NEUROPATHY PERIPHERAL
     Dosage: 300 MG, 2X/DAY
     Dates: start: 20190629
  13. GENTLE IRON [Concomitant]
     Dosage: 60 MG, DAILY
  14. VITAMIN B12 [Concomitant]
     Active Substance: CYANOCOBALAMIN
     Dosage: 500 UG, DAILY (TAKE ONE TABLET/CAPSULE BY MOUTH EVERY DAY)
     Route: 048
  15. CALTRATE 600 +D PLUS [Concomitant]
     Dosage: UNK UNK, 2X/DAY  (600MG CALCIUM-400 UNIT TAB)
  16. DIGOXIN. [Concomitant]
     Active Substance: DIGOXIN
     Dosage: 0.125 MG, WEEKLY (3 X A WEEK M WF)
  17. DOXYCYCLINE. [Concomitant]
     Active Substance: DOXYCYCLINE
     Dosage: 100 MG, 2X/DAY
     Route: 048
  18. TORSEMIDE. [Concomitant]
     Active Substance: TORSEMIDE
     Dosage: 2 DF, 1X/DAY
     Dates: start: 20190624
  19. NOVOLOG [Concomitant]
     Active Substance: INSULIN ASPART
     Dosage: UNK UNK, 2X/DAY (INJECT INTO THE SKIN 2 (TWO) TIMES DAILY BEFORE MEALS PER SLIDING SCALE)
  20. RESTORIL [Concomitant]
     Active Substance: TEMAZEPAM
     Indication: SLEEP DISORDER
     Dosage: 30 MG, 1X/DAY (TAKE ONE CAPSULE BY MOUTH EVERY NIGHT AT BEDTIME)
     Route: 048
  21. POTASSIUM CHLORIDE. [Concomitant]
     Active Substance: POTASSIUM CHLORIDE
     Dosage: 20 MG, 1X/DAY
  22. LOTRISONE [Concomitant]
     Active Substance: BETAMETHASONE DIPROPIONATE\CLOTRIMAZOLE
     Dosage: UNK UNK, 2X/DAY
     Route: 067
  23. METOPROLOL. [Concomitant]
     Active Substance: METOPROLOL
     Dosage: 50 MG, 2X/DAY
  24. ALLEGRA [Concomitant]
     Active Substance: FEXOFENADINE HYDROCHLORIDE
     Dosage: 180 MG, AS NEEDED
  25. LANTUS [Concomitant]
     Active Substance: INSULIN GLARGINE
     Dosage: UNK UNK, 2X/DAY (1 AM- 1 PM INJECT 60 UNITS INTO THE 2 (TWO) TIMES DAILY BEFORE MEALS)
  26. MUPIROCIN. [Concomitant]
     Active Substance: MUPIROCIN
     Dosage: UNK UNK, 3X/DAY
     Route: 061
  27. VITAMIN D3 [Concomitant]
     Active Substance: CHOLECALCIFEROL
     Dosage: UNK UNK, DAILY (TAKE 5,000 UNITS BY MOUTH DAILY)
     Route: 048
  28. LEXAPRO [Concomitant]
     Active Substance: ESCITALOPRAM OXALATE
     Indication: DEPRESSION
     Dosage: 5 MG, 1X/DAY
  29. NITROGLYCERIN. [Concomitant]
     Active Substance: NITROGLYCERIN
     Indication: CHEST PAIN
     Dosage: 0.4 MG, AS NEEDED
     Route: 060
  30. JANUVIA [Concomitant]
     Active Substance: SITAGLIPTIN PHOSPHATE
     Dosage: 100 MG, DAILY
     Route: 048

REACTIONS (1)
  - Mobility decreased [Not Recovered/Not Resolved]
